FAERS Safety Report 9398291 (Version 1)
Quarter: 2013Q3

REPORT INFORMATION
  Report Type: Spontaneous
  Country: US (occurrence: US)
  Receive Date: 20130712
  Receipt Date: 20130712
  Transmission Date: 20140515
  Serious: No
  Sender: FDA-Public Use
  Company Number: US-GLAXOSMITHKLINE-A1001295A

PATIENT
  Age: 36 Year
  Sex: Female

DRUGS (4)
  1. FLOVENT [Suspect]
     Indication: ASTHMA
     Dosage: 1PUFF TWICE PER DAY
     Dates: start: 20121018, end: 20121022
  2. ZOLOFT [Concomitant]
  3. ARMOUR THYROID [Concomitant]
  4. PRO-AIR [Concomitant]

REACTIONS (1)
  - Oropharyngeal pain [Recovered/Resolved]
